FAERS Safety Report 19661476 (Version 5)
Quarter: 2022Q2

REPORT INFORMATION
  Report Type: Report from Study
  Country: US (occurrence: US)
  Receive Date: 20210805
  Receipt Date: 20220505
  Transmission Date: 20220721
  Serious: No
  Sender: FDA-Public Use
  Company Number: NVSC2021US162562

PATIENT
  Sex: Female

DRUGS (4)
  1. COSENTYX [Suspect]
     Active Substance: SECUKINUMAB
     Indication: Pain
     Dosage: 300 MG, QMO
     Route: 058
  2. COSENTYX [Suspect]
     Active Substance: SECUKINUMAB
     Indication: Psoriasis
     Dosage: STARTED ON 02 NOV (UNSPECIFIED YEAR)
     Route: 065
  3. COSENTYX [Suspect]
     Active Substance: SECUKINUMAB
     Dosage: STARTED ON 04 NOV (UNSPECIFIED YEAR)
     Route: 065
  4. COSENTYX [Suspect]
     Active Substance: SECUKINUMAB
     Dosage: UNK UNK, QMO
     Route: 058

REACTIONS (7)
  - Skin plaque [Unknown]
  - Pain [Unknown]
  - Product use in unapproved indication [Unknown]
  - Joint injury [Unknown]
  - Arthralgia [Unknown]
  - Ligament rupture [Unknown]
  - Meniscus injury [Unknown]
